FAERS Safety Report 6972222-7 (Version None)
Quarter: 2010Q3

REPORT INFORMATION
  Report Type: 
  Country: None (occurrence: None)
  Receive Date: 20100909
  Receipt Date: 20100825
  Transmission Date: 20110219
  Serious: Yes (Hospitalization, Other)
  Sender: FDA-Public Use
  Company Number: US-PAR PHARMACEUTICAL, INC-2010SCPR001985

PATIENT
  Age: 11 Month
  Sex: Female

DRUGS (4)
  1. PROPRANOLOL HYDROCHLORIDE [Suspect]
     Indication: HAEMANGIOMA
     Dosage: 0.3 MG/KG/D
     Route: 065
  2. PROPRANOLOL HYDROCHLORIDE [Suspect]
     Dosage: 2 MG/KG/D DIVIDED EVERY 8 HOURS
  3. IBUPROFEN [Concomitant]
     Indication: TEETHING
     Dosage: ONE DOSE
  4. BENZOCAINE [Concomitant]
     Indication: TEETHING
     Dosage: UNK
     Route: 065

REACTIONS (7)
  - COLD SWEAT [None]
  - FEELING ABNORMAL [None]
  - HYPOGLYCAEMIA [None]
  - HYPOTHERMIA [None]
  - IDIOSYNCRATIC DRUG REACTION [None]
  - PALLOR [None]
  - UNRESPONSIVE TO STIMULI [None]
